FAERS Safety Report 23354441 (Version 1)
Quarter: 2024Q1

REPORT INFORMATION
  Report Type: Other
  Country: JP (occurrence: None)
  Receive Date: 20240101
  Receipt Date: 20240101
  Transmission Date: 20240410
  Serious: Yes (Other)
  Sender: FDA-Public Use
  Company Number: JP-ROCHE-3451629

PATIENT

DRUGS (1)
  1. RITUXIMAB [Suspect]
     Active Substance: RITUXIMAB
     Indication: B-cell lymphoma
     Route: 041

REACTIONS (15)
  - Febrile neutropenia [Unknown]
  - Sepsis [Unknown]
  - Aspartate aminotransferase increased [Unknown]
  - Alanine aminotransferase increased [Unknown]
  - Vascular device infection [Unknown]
  - Pneumonia [Unknown]
  - Enterocolitis infectious [Unknown]
  - Urinary tract infection [Unknown]
  - Acute kidney injury [Unknown]
  - Leukoencephalopathy [Unknown]
  - Enteritis [Unknown]
  - Stomatitis [Unknown]
  - Herpes zoster [Unknown]
  - Depressed level of consciousness [Unknown]
  - Gastrointestinal infection [Unknown]
